FAERS Safety Report 5200756-4 (Version None)
Quarter: 2006Q4

REPORT INFORMATION
  Report Type: 
  Country: None (occurrence: None)
  Receive Date: 20061016
  Receipt Date: 20060710
  Transmission Date: 20070319
  Serious: No
  Sender: FDA-Public Use
  Company Number: 2006SP002637

PATIENT
  Age: 45 Year
  Sex: Male
  Weight: 67.1324 kg

DRUGS (11)
  1. LUNESTA [Suspect]
     Indication: INSOMNIA
     Dosage: 2 MG; HS; ORAL
     Route: 048
     Dates: start: 20060706
  2. OXCARBAZEPINE [Concomitant]
  3. ISOSORBIDE [Concomitant]
  4. SIMVASTATIN [Concomitant]
  5. TOPROL-XL [Concomitant]
  6. PHENOBARBITAL TAB [Concomitant]
  7. FOLTX [Concomitant]
  8. LYRICA [Concomitant]
  9. LEVOTHYROXINE SODIUM [Concomitant]
  10. CLONAZEPAM [Concomitant]
  11. FLUOXETINE [Concomitant]

REACTIONS (2)
  - DRUG INEFFECTIVE [None]
  - INITIAL INSOMNIA [None]
